FAERS Safety Report 21986483 (Version 1)
Quarter: 2023Q1

REPORT INFORMATION
  Report Type: Other
  Country: AU (occurrence: AU)
  Receive Date: 20230213
  Receipt Date: 20230213
  Transmission Date: 20230417
  Serious: Yes (Hospitalization)
  Sender: FDA-Public Use
  Company Number: AU-MAYNE PHARMA-2023MYN000221

PATIENT

DRUGS (3)
  1. ERYTHROMYCIN [Suspect]
     Active Substance: ERYTHROMYCIN
     Indication: Product used for unknown indication
  2. AMETHOCAINE HYDROCHLORIDE [Concomitant]
     Indication: Product used for unknown indication
  3. CHLORAMPHENICOL [Concomitant]
     Active Substance: CHLORAMPHENICOL
     Indication: Product used for unknown indication

REACTIONS (1)
  - Corneal abrasion [Unknown]

NARRATIVE: CASE EVENT DATE: 20220407
